FAERS Safety Report 6998890-1 (Version None)
Quarter: 2010Q3

REPORT INFORMATION
  Report Type: 
  Country: None (occurrence: None)
  Receive Date: 20100920
  Receipt Date: 20091201
  Transmission Date: 20110219
  Serious: No
  Sender: FDA-Public Use
  Company Number: US-ASTRAZENECA-2009SE29651

PATIENT
  Sex: Male

DRUGS (1)
  1. SEROQUEL XR [Suspect]
     Dosage: TWICE A DAY
     Route: 048
     Dates: start: 20090601

REACTIONS (2)
  - MEDICATION ERROR [None]
  - SOMNOLENCE [None]
